FAERS Safety Report 9630647 (Version 1)
Quarter: 2013Q4

REPORT INFORMATION
  Report Type: Spontaneous
  Country: US (occurrence: None)
  Receive Date: 20131015
  Receipt Date: 20131015
  Transmission Date: 20140711
  Serious: Yes (Other)
  Sender: FDA-Public Use
  Company Number: HA13-344-AE

PATIENT
  Age: 67 Year
  Sex: Female
  Weight: 77.11 kg

DRUGS (5)
  1. GABAPENTIN [Suspect]
     Indication: RESTLESS LEGS SYNDROME
     Dosage: 8 CAPSULES
     Route: 048
     Dates: start: 2006, end: 201301
  2. JANUVIA [Concomitant]
  3. FELODIPINE [Concomitant]
  4. POTASSIUM PILLS [Concomitant]
  5. LYRICA [Concomitant]

REACTIONS (5)
  - Diabetic neuropathy [None]
  - Multiple sclerosis [None]
  - Paraesthesia [None]
  - Drug ineffective [None]
  - Neuralgia [None]
